FAERS Safety Report 10145778 (Version 2)
Quarter: 2014Q2

REPORT INFORMATION
  Report Type: Report from Study
  Country: US (occurrence: US)
  Receive Date: 20140501
  Receipt Date: 20140501
  Transmission Date: 20141212
  Serious: No
  Sender: FDA-Public Use
  Company Number: US-ABBVIE-13P-163-1096869-00

PATIENT
  Age: 55 Year
  Sex: Female

DRUGS (2)
  1. CREON [Suspect]
     Indication: PANCREATIC INSUFFICIENCY
  2. UNKNOWN SUPPLEMENTS [Concomitant]
     Indication: SUPPLEMENTATION THERAPY

REACTIONS (6)
  - Abdominal distension [Unknown]
  - Drug ineffective [Unknown]
  - Flatulence [Unknown]
  - Irritable bowel syndrome [Unknown]
  - Abdominal pain upper [Not Recovered/Not Resolved]
  - Insomnia [Unknown]
